FAERS Safety Report 5087617-9 (Version None)
Quarter: 2006Q3

REPORT INFORMATION
  Report Type: 
  Country: None (occurrence: None)
  Receive Date: 20060823
  Receipt Date: 20060823
  Transmission Date: 20061208
  Serious: Yes (Hospitalization)
  Sender: FDA-Public Use
  Company Number: None

PATIENT
  Age: 65 Year
  Sex: Male
  Weight: 68 kg

DRUGS (10)
  1. WARFARIN SODIUM [Suspect]
     Indication: DEEP VEIN THROMBOSIS
     Dosage: 7.5MG/ 5MG     MO- WE --- TU-TH-FR-SA-SU    PO
     Route: 048
     Dates: start: 20060307, end: 20060521
  2. CARBIDOPA AND LEVODOPA [Concomitant]
  3. CLOPIDOGREL [Concomitant]
  4. DIVALPROEX [Concomitant]
  5. DOCUSATE [Concomitant]
  6. LISINOPRIL [Concomitant]
  7. LOVASTATIN [Concomitant]
  8. OMEPRAZOLE [Concomitant]
  9. PHENYTOIN [Concomitant]
  10. SEVELAMER [Concomitant]

REACTIONS (5)
  - CELLULITIS [None]
  - CLOSTRIDIAL INFECTION [None]
  - HAEMORRHOIDS [None]
  - RECTAL HAEMORRHAGE [None]
  - VASCULAR GRAFT COMPLICATION [None]
